FAERS Safety Report 9142367 (Version 3)
Quarter: 2013Q2

REPORT INFORMATION
  Report Type: Spontaneous
  Country: US (occurrence: US)
  Receive Date: 20130306
  Receipt Date: 20130402
  Transmission Date: 20140414
  Serious: No
  Sender: FDA-Public Use
  Company Number: US-009507513-1303USA001471

PATIENT
  Age: 31 Year
  Sex: Female
  Weight: 103.4 kg

DRUGS (2)
  1. IMPLANON [Suspect]
     Indication: CONTRACEPTION
     Dosage: 1 DF, UNK
     Route: 059
     Dates: start: 20111212
  2. IMPLANON [Suspect]
     Dosage: 1 DF, UNK
     Route: 059
     Dates: start: 20081229

REACTIONS (3)
  - Unintended pregnancy [Unknown]
  - Metrorrhagia [Unknown]
  - Medical device complication [Unknown]
